FAERS Safety Report 6990773-6 (Version None)
Quarter: 2010Q3

REPORT INFORMATION
  Report Type: 
  Country: None (occurrence: None)
  Receive Date: 20100916
  Receipt Date: 20090806
  Transmission Date: 20110219
  Serious: Yes (Other)
  Sender: FDA-Public Use
  Company Number: HQWYE339502AUG07

PATIENT
  Sex: Female
  Weight: 90.8 kg

DRUGS (3)
  1. PREMARIN [Suspect]
     Indication: OESTROGEN THERAPY
     Route: 048
     Dates: start: 19750101, end: 19950101
  2. OGEN [Suspect]
  3. VALIUM [Concomitant]
     Indication: ANXIETY
     Dosage: UNSPECIFIED DOSE DAILY
     Route: 048

REACTIONS (1)
  - BREAST CANCER [None]
